FAERS Safety Report 17548299 (Version 1)
Quarter: 2020Q1

REPORT INFORMATION
  Report Type: Spontaneous
  Country: US (occurrence: US)
  Receive Date: 20200317
  Receipt Date: 20200317
  Transmission Date: 20200409
  Serious: Yes (Death, Life-Threatening, Hospitalization)
  Sender: FDA-Public Use
  Company Number: US-ROCHE-2564878

PATIENT
  Age: 55 Year
  Sex: Female

DRUGS (1)
  1. OCREVUS [Suspect]
     Active Substance: OCRELIZUMAB
     Indication: RELAPSING MULTIPLE SCLEROSIS
     Route: 048
     Dates: start: 201810

REACTIONS (3)
  - Acute kidney injury [Unknown]
  - Cardiac arrest [Fatal]
  - Constipation [Unknown]

NARRATIVE: CASE EVENT DATE: 20191122
